FAERS Safety Report 7152027-7 (Version None)
Quarter: 2011Q1

REPORT INFORMATION
  Report Type: 
  Country: None (occurrence: None)
  Receive Date: 20101123
  Receipt Date: 20101111
  Transmission Date: 20110831
  Serious: Yes (Hospitalization)
  Sender: FDA-Public Use
  Company Number: 10-487

PATIENT
  Age: 34 Year
  Sex: Female

DRUGS (2)
  1. ACETAMINOPHEN [Suspect]
  2. IBUPROFEN [Suspect]
     Dosage: ORAL
     Route: 048
     Dates: start: 20090101

REACTIONS (1)
  - MULTIPLE DRUG OVERDOSE [None]
